FAERS Safety Report 10196845 (Version 2)
Quarter: 2014Q2

REPORT INFORMATION
  Report Type: Spontaneous
  Country: US (occurrence: US)
  Receive Date: 20140527
  Receipt Date: 20140527
  Transmission Date: 20141212
  Serious: No
  Sender: FDA-Public Use
  Company Number: US-ASTRAZENECA-2010SE49193

PATIENT
  Age: 68 Year
  Sex: Male
  Weight: 91.6 kg

DRUGS (11)
  1. NEXIUM [Suspect]
     Indication: GASTROOESOPHAGEAL REFLUX DISEASE
     Route: 048
     Dates: start: 2010, end: 20140415
  2. LISINOPRIL [Suspect]
     Indication: PREHYPERTENSION
     Route: 048
     Dates: start: 201402
  3. WELBUTRIN [Concomitant]
     Indication: POST-TRAUMATIC STRESS DISORDER
  4. WELBUTRIN [Concomitant]
     Indication: DEPRESSION
  5. XYZAL [Concomitant]
     Indication: SINUS DISORDER
  6. SINGULAIR [Concomitant]
     Indication: SINUS DISORDER
  7. FLUOXETINE [Concomitant]
     Indication: POST-TRAUMATIC STRESS DISORDER
  8. LIDODERM PATCH [Concomitant]
     Indication: INTERVERTEBRAL DISC PROTRUSION
  9. ASPIRIN [Concomitant]
     Indication: POOR PERIPHERAL CIRCULATION
  10. PERCOCET [Concomitant]
     Indication: PAIN
  11. SAWTALMETTO [Concomitant]
     Indication: PROSTATIC DISORDER

REACTIONS (9)
  - Hepatic steatosis [Unknown]
  - Sinus operation [Unknown]
  - Nasal septum deviation [Unknown]
  - Prehypertension [Unknown]
  - Hepatic enzyme increased [Unknown]
  - Insomnia [Unknown]
  - Malaise [Unknown]
  - Malaise [Unknown]
  - Drug dose omission [Unknown]
